FAERS Safety Report 8458820-2 (Version None)
Quarter: 2012Q2

REPORT INFORMATION
  Report Type: 
  Country: None (occurrence: None)
  Receive Date: 20120618
  Receipt Date: 20120604
  Transmission Date: 20120825
  Serious: Yes (Other)
  Sender: FDA-Public Use
  Company Number: US-INDICUS-PHARMA-000001

PATIENT
  Age: 55 Year
  Sex: Female
  Weight: 93 kg

DRUGS (6)
  1. LOSARTAN POTASSIUM [Concomitant]
  2. METFORMIN HCL [Suspect]
     Indication: TYPE 2 DIABETES MELLITUS
     Dosage: 1000.00-MG-2.00  TIMES PER-1.0DYS / ORAL
     Route: 048
  3. GLIPIZIDE [Suspect]
     Indication: TYPE 2 DIABETES MELLITUS
     Dosage: 10.00-MG-2.00 TIMES PER-1.ODAYS / ORAL
     Route: 048
  4. SITAGLIPTIN [Suspect]
     Indication: TYPE 2 DIABETES MELLITUS
     Dosage: 100.00-MG-1.0DAYS
  5. EXENATIDE (EXENATIDE) [Suspect]
     Indication: TYPE 2 DIABETES MELLITUS
     Dosage: 5.00-UG-2.00 TIMES  PER-1.0DAYS / SUBCUTANEOUS
     Route: 058
  6. LISINOPRIL [Suspect]
     Indication: BLOOD PRESSURE
     Dosage: ORAL
     Route: 048

REACTIONS (9)
  - GLYCOSYLATED HAEMOGLOBIN INCREASED [None]
  - BLOOD ALKALINE PHOSPHATASE INCREASED [None]
  - HYPOGLYCAEMIA [None]
  - FUNGAL INFECTION [None]
  - POLYDIPSIA [None]
  - WEIGHT DECREASED [None]
  - NON-ALCOHOLIC STEATOHEPATITIS [None]
  - ASPARTATE AMINOTRANSFERASE INCREASED [None]
  - ALANINE AMINOTRANSFERASE INCREASED [None]
